FAERS Safety Report 4686780-9 (Version None)
Quarter: 2005Q2

REPORT INFORMATION
  Report Type: 
  Country: None (occurrence: None)
  Receive Date: 20050608
  Receipt Date: 20050525
  Transmission Date: 20051028
  Serious: Yes (Hospitalization)
  Sender: FDA-Public Use
  Company Number: 2005083323

PATIENT
  Age: 55 Year
  Sex: Male

DRUGS (1)
  1. XALATAN [Suspect]
     Indication: INTRAOCULAR PRESSURE DECREASED
     Dosage: (1 IN 1 D), OPHTHALMIC
     Route: 047
     Dates: start: 20050119

REACTIONS (2)
  - ACCIDENTAL OVERDOSE [None]
  - CATARACT OPERATION [None]
